FAERS Safety Report 14749561 (Version 2)
Quarter: 2018Q2

REPORT INFORMATION
  Report Type: Spontaneous
  Country: BR (occurrence: BR)
  Receive Date: 20180411
  Receipt Date: 20180419
  Transmission Date: 20180711
  Serious: Yes (Other)
  Sender: FDA-Public Use
  Company Number: BR-009507513-1804BRA002725

PATIENT
  Age: 27 Year
  Sex: Female
  Weight: 56 kg

DRUGS (3)
  1. NUVARING [Suspect]
     Active Substance: ETHINYL ESTRADIOL\ETONOGESTREL
     Indication: CONTRACEPTION
     Dosage: ONE VAGINAL RING
     Route: 067
     Dates: start: 2012
  2. NUVARING [Suspect]
     Active Substance: ETHINYL ESTRADIOL\ETONOGESTREL
     Dosage: ONE VAGINAL RING
     Route: 067
     Dates: start: 20180403
  3. NUVARING [Suspect]
     Active Substance: ETHINYL ESTRADIOL\ETONOGESTREL
     Dosage: ONE VAGINAL RING
     Route: 067
     Dates: start: 20180327

REACTIONS (8)
  - Migraine [Not Recovered/Not Resolved]
  - Abdominal pain [Not Recovered/Not Resolved]
  - Discomfort [Unknown]
  - Device expulsion [Unknown]
  - Vulvovaginal injury [Unknown]
  - Device breakage [Unknown]
  - Vulvovaginal injury [Unknown]
  - Device breakage [Unknown]

NARRATIVE: CASE EVENT DATE: 201712
